FAERS Safety Report 8972018 (Version 1)
Quarter: 2012Q4

REPORT INFORMATION
  Report Type: 
  Country: DE (occurrence: DE)
  Receive Date: 20121218
  Receipt Date: 20121218
  Transmission Date: 20130627
  Serious: Yes (Other)
  Sender: FDA-Public Use
  Company Number: DE-INCYTE CORPORATION-2012IN002575

PATIENT
  Sex: Female

DRUGS (8)
  1. JAKAVI [Suspect]
     Dosage: 5 mg, UNK
     Route: 065
  2. ASS [Concomitant]
  3. MADOPAR [Concomitant]
  4. MADOPAR LT [Concomitant]
  5. AXURA [Concomitant]
  6. BACLOFEN [Concomitant]
  7. VALPROIC ACID [Concomitant]
  8. LEVETIRACETAM [Concomitant]

REACTIONS (5)
  - Brain mass [Unknown]
  - Altered state of consciousness [Unknown]
  - Cerebral haemorrhage [Unknown]
  - Paralysis [Unknown]
  - Mobility decreased [Unknown]
